FAERS Safety Report 8007561-4 (Version None)
Quarter: 2011Q4

REPORT INFORMATION
  Report Type: 
  Country: None (occurrence: None)
  Receive Date: 20111221
  Receipt Date: 20110309
  Transmission Date: 20120403
  Serious: No
  Sender: FDA-Public Use
  Company Number: AEUSA201100048

PATIENT

DRUGS (1)
  1. HYPERHEP B [Suspect]
     Indication: PRODUCT USED FOR UNKNOWN INDICATION
     Dosage: UNKNOWN; IM
     Route: 030

REACTIONS (2)
  - MEDICATION ERROR [None]
  - PRODUCT PACKAGING ISSUE [None]
